FAERS Safety Report 16089010 (Version 2)
Quarter: 2021Q4

REPORT INFORMATION
  Report Type: Spontaneous
  Country: US (occurrence: US)
  Receive Date: 20190319
  Receipt Date: 20211018
  Transmission Date: 20220304
  Serious: Yes (Disabling, Other)
  Sender: FDA-Public Use
  Company Number: US-TEVA-2019-US-1026263

PATIENT
  Age: 36 Year
  Sex: Female
  Weight: 58.15 kg

DRUGS (12)
  1. DOCETAXEL [Suspect]
     Active Substance: DOCETAXEL
     Indication: Breast cancer female
     Dosage: NUMBER OF CYCLE - 06, FREQUENCY - EVERY THREE WEEKS TAXOTERE 75 MG/M2
     Route: 042
     Dates: start: 20150902, end: 20151231
  2. CARBOPLATIN [Suspect]
     Active Substance: CARBOPLATIN
     Indication: Breast cancer female
     Dosage: NUMBER OF CYCLE - 06, FREQUENCY - EVERY THREE WEEKS  CARBOPLATIN AUC 6
     Route: 042
     Dates: start: 20150902, end: 20151231
  3. TRASTUZUMAB [Suspect]
     Active Substance: TRASTUZUMAB
     Indication: Breast cancer female
     Dosage: NUMBER OF CYCLE - 06, FREQUENCY - EVERY THREE WEEKS,8 MG/KG LOADING DOSE FOLLOWED BY 6 MG/KG
     Route: 042
     Dates: start: 20150902, end: 20151231
  4. PERTUZUMAB [Suspect]
     Active Substance: PERTUZUMAB
     Indication: Breast cancer female
     Dosage: NUMBER OF CYCLE - 06, FREQUENCY - EVERY THREE WEEKS,840 MG LOADING DOSE DAY 1 FOLLOWED BY 420 MG
     Route: 042
     Dates: start: 20150902, end: 20151231
  5. NEULASTA [Suspect]
     Active Substance: PEGFILGRASTIM
     Route: 065
  6. DEXAMETHASONE [Concomitant]
     Active Substance: DEXAMETHASONE
     Route: 065
  7. METOPROLOL SUCCINATE [Concomitant]
     Active Substance: METOPROLOL SUCCINATE
     Route: 065
  8. PROMETHAZINE [Concomitant]
     Active Substance: PROMETHAZINE HYDROCHLORIDE
     Route: 065
  9. ZYRTEC [Concomitant]
     Active Substance: CETIRIZINE HYDROCHLORIDE
     Route: 065
  10. WARFARIN [Concomitant]
     Active Substance: WARFARIN
     Route: 065
  11. LAMOTRIGINE [Concomitant]
     Active Substance: LAMOTRIGINE
     Route: 065
     Dates: start: 201506
  12. ZOLOFT [Concomitant]
     Active Substance: SERTRALINE HYDROCHLORIDE
     Route: 065
     Dates: start: 201506

REACTIONS (34)
  - Alopecia totalis [Not Recovered/Not Resolved]
  - Alopecia areata [Not Recovered/Not Resolved]
  - Madarosis [Not Recovered/Not Resolved]
  - Hair texture abnormal [Not Recovered/Not Resolved]
  - Hair colour changes [Not Recovered/Not Resolved]
  - Nausea [Recovering/Resolving]
  - Vomiting [Recovering/Resolving]
  - Hypophagia [Unknown]
  - Fatigue [Unknown]
  - Weight decreased [Unknown]
  - Diarrhoea [Unknown]
  - Arthralgia [Recovering/Resolving]
  - Myalgia [Recovering/Resolving]
  - Bone pain [Recovering/Resolving]
  - Thrombocytopenia [Recovered/Resolved]
  - Oedema peripheral [Recovering/Resolving]
  - Palmar erythema [Unknown]
  - Skin exfoliation [Unknown]
  - Stomatitis [Unknown]
  - Oropharyngeal pain [Unknown]
  - Epigastric discomfort [Unknown]
  - Decreased appetite [Unknown]
  - Gastrooesophageal reflux disease [Unknown]
  - Headache [Unknown]
  - Contusion [Unknown]
  - Epistaxis [Recovered/Resolved]
  - Anaemia [Unknown]
  - Mucosal inflammation [Unknown]
  - Ulcer [Unknown]
  - Breast discomfort [Unknown]
  - Abdominal discomfort [Unknown]
  - Insomnia [Unknown]
  - Aphthous ulcer [Unknown]
  - Arthralgia [Unknown]

NARRATIVE: CASE EVENT DATE: 20150101
